FAERS Safety Report 10884772 (Version 3)
Quarter: 2015Q2

REPORT INFORMATION
  Report Type: Spontaneous
  Country: US (occurrence: US)
  Receive Date: 20150304
  Receipt Date: 20150407
  Transmission Date: 20150821
  Serious: Yes (Other)
  Sender: FDA-Public Use
  Company Number: US-BAYER-2015-032601

PATIENT
  Age: 24 Year
  Sex: Female
  Weight: 93.88 kg

DRUGS (1)
  1. MIRENA [Suspect]
     Active Substance: LEVONORGESTREL
     Dosage: 20 MCG/24HR, CONT
     Route: 015
     Dates: start: 20120312, end: 20150216

REACTIONS (12)
  - Embedded device [Recovered/Resolved]
  - Back pain [None]
  - Complication of device removal [None]
  - Device difficult to use [Recovered/Resolved]
  - Dysmenorrhoea [None]
  - Pelvic pain [None]
  - Fatigue [None]
  - Iron deficiency anaemia [None]
  - Device breakage [None]
  - Uterine haemorrhage [None]
  - Device expulsion [Recovered/Resolved]
  - Procedural pain [None]

NARRATIVE: CASE EVENT DATE: 20130424
